FAERS Safety Report 8903145 (Version 2)
Quarter: 2013Q1

REPORT INFORMATION
  Report Type: Report from Study
  Country: US (occurrence: US)
  Receive Date: 20121112
  Receipt Date: 20130129
  Transmission Date: 20140127
  Serious: Yes (Other)
  Sender: FDA-Public Use
  Company Number: US-BAYER-2012-110230

PATIENT
  Age: 87 Year
  Sex: Female

DRUGS (2)
  1. NEXAVAR [Suspect]
     Indication: SOFT TISSUE CANCER
     Dosage: 200 MG, BID
     Route: 048
     Dates: start: 20121003, end: 20121013
  2. NEXAVAR [Suspect]
     Indication: SOFT TISSUE CANCER
     Dosage: 1 TABLET EVERY MORNING AND 2 TABLETS EVERY EVENING
     Route: 048
     Dates: start: 20121022

REACTIONS (13)
  - Decreased appetite [Not Recovered/Not Resolved]
  - Abasia [Recovering/Resolving]
  - Nausea [Recovering/Resolving]
  - Malaise [Recovering/Resolving]
  - Pain in extremity [Recovering/Resolving]
  - Asthenia [Not Recovered/Not Resolved]
  - Dysphonia [Not Recovered/Not Resolved]
  - Weight decreased [Not Recovered/Not Resolved]
  - Throat irritation [Not Recovered/Not Resolved]
  - Glossodynia [Not Recovered/Not Resolved]
  - Oral pain [Not Recovered/Not Resolved]
  - Lip pain [Not Recovered/Not Resolved]
  - Off label use [None]
